FAERS Safety Report 5519038-6 (Version None)
Quarter: 2007Q4

REPORT INFORMATION
  Report Type: 
  Country: None (occurrence: None)
  Receive Date: 20071116
  Receipt Date: 20071108
  Transmission Date: 20080405
  Serious: Yes (Hospitalization)
  Sender: FDA-Public Use
  Company Number: PHBS2007JP17470

PATIENT
  Age: 56 Year
  Sex: Male

DRUGS (7)
  1. SIMULECT [Suspect]
     Indication: RENAL TRANSPLANT
     Route: 041
  2. PROPOFOL [Concomitant]
     Indication: INDUCTION OF ANAESTHESIA
  3. FENTANYL [Concomitant]
     Indication: INDUCTION OF ANAESTHESIA
  4. VECURONIUM BROMIDE [Concomitant]
     Indication: INDUCTION OF ANAESTHESIA
  5. SEVOFLURANE [Concomitant]
  6. OXYGEN [Concomitant]
  7. ANESTHETICS NOS [Concomitant]
     Route: 008

REACTIONS (5)
  - ANAPHYLACTIC SHOCK [None]
  - CONTINUOUS HAEMODIAFILTRATION [None]
  - HYPERSENSITIVITY [None]
  - HYPOTENSION [None]
  - RESPIRATORY DISORDER [None]
